FAERS Safety Report 19770383 (Version 7)
Quarter: 2022Q1

REPORT INFORMATION
  Report Type: Report from Study
  Country: US (occurrence: US)
  Receive Date: 20210901
  Receipt Date: 20220111
  Transmission Date: 20220424
  Serious: Yes (Other)
  Sender: FDA-Public Use
  Company Number: NVSC2021US195688

PATIENT
  Sex: Female

DRUGS (2)
  1. PIQRAY [Suspect]
     Active Substance: ALPELISIB
     Indication: Breast cancer
     Dosage: 300 MG, QOD
     Route: 065
  2. PIQRAY [Suspect]
     Active Substance: ALPELISIB
     Dosage: 150 MG, QOD
     Route: 048

REACTIONS (17)
  - Cellulitis [Unknown]
  - Eating disorder [Unknown]
  - Urticaria [Unknown]
  - Fall [Unknown]
  - Back pain [Unknown]
  - Injury [Unknown]
  - Localised infection [Unknown]
  - Stomatitis [Recovered/Resolved]
  - Diarrhoea [Unknown]
  - Skin ulcer [Not Recovered/Not Resolved]
  - Oropharyngeal pain [Unknown]
  - Tumour marker increased [Unknown]
  - Peripheral arterial occlusive disease [Unknown]
  - Weight decreased [Unknown]
  - Dry skin [Unknown]
  - Dehydration [Unknown]
  - Rash [Unknown]
